FAERS Safety Report 6132861-2 (Version None)
Quarter: 2009Q1

REPORT INFORMATION
  Report Type: 
  Country: None (occurrence: None)
  Receive Date: 20090324
  Receipt Date: 20090324
  Transmission Date: 20090719
  Serious: Yes (Hospitalization)
  Sender: FDA-Public Use
  Company Number: None

PATIENT
  Sex: Male
  Weight: 53.978 kg

DRUGS (5)
  1. GLIPIZIDE [Suspect]
     Indication: DIABETES MELLITUS
     Dosage: 10MG DAILY PO
     Route: 048
     Dates: start: 20081204, end: 20081214
  2. NPH INSULIN 100 UNITS/ ML [Suspect]
     Indication: DIABETES MELLITUS
     Dosage: UNKOWN UNKNOWN SQ
     Route: 058
     Dates: start: 20081204, end: 20081214
  3. LISINOPRIL AND HYDROCHLOROTHIAZIDE [Concomitant]
  4. SIMVASTATIN [Concomitant]
  5. VICODIN [Concomitant]

REACTIONS (7)
  - ACUTE PRERENAL FAILURE [None]
  - DIARRHOEA [None]
  - HYPOGLYCAEMIA [None]
  - HYPOPHAGIA [None]
  - MENTAL STATUS CHANGES [None]
  - NAUSEA [None]
  - VOMITING [None]
